FAERS Safety Report 9440106 (Version 1)
Quarter: 2013Q3

REPORT INFORMATION
  Report Type: Spontaneous
  Country: US (occurrence: US)
  Receive Date: 20130805
  Receipt Date: 20130805
  Transmission Date: 20140515
  Serious: No
  Sender: FDA-Public Use
  Company Number: US-TEVA-423230USA

PATIENT
  Sex: Female
  Weight: 94.43 kg

DRUGS (1)
  1. NUVIGIL [Suspect]
     Indication: NARCOLEPSY
     Dates: start: 20130320, end: 20130617

REACTIONS (1)
  - Pain in extremity [Unknown]
